FAERS Safety Report 5213705-X (Version None)
Quarter: 2007Q1

REPORT INFORMATION
  Report Type: 
  Country: None (occurrence: None)
  Receive Date: 20070119
  Receipt Date: 20070109
  Transmission Date: 20070707
  Serious: Yes (Death)
  Sender: FDA-Public Use
  Company Number: KR-PFIZER INC-2007003201

PATIENT
  Sex: Female
  Weight: 60 kg

DRUGS (5)
  1. ZYVOX [Suspect]
     Indication: STAPHYLOCOCCAL SEPSIS
     Route: 042
     Dates: start: 20061013, end: 20061028
  2. ZYVOX [Suspect]
     Indication: URINARY TRACT INFECTION
  3. TAZOCIN [Concomitant]
     Dosage: DAILY DOSE:9GRAM
     Route: 042
     Dates: start: 20061011, end: 20061020
  4. HYDROCORTISONE [Concomitant]
     Dosage: DAILY DOSE:200MG
     Route: 042
     Dates: start: 20061016, end: 20061025
  5. NOREPINEPHRINE BITARTRATE [Concomitant]
     Dosage: DAILY DOSE:16MG
     Route: 042
     Dates: start: 20061016, end: 20061020

REACTIONS (1)
  - DEATH [None]
